FAERS Safety Report 15784432 (Version 2)
Quarter: 2019Q1

REPORT INFORMATION
  Report Type: Report from Study
  Country: US (occurrence: US)
  Receive Date: 20190103
  Receipt Date: 20190221
  Transmission Date: 20190417
  Serious: Yes (Hospitalization, Other)
  Sender: FDA-Public Use
  Company Number: US-GILEAD-2018-0381481

PATIENT
  Age: 44 Year
  Sex: Female
  Weight: 113.24 kg

DRUGS (19)
  1. LIRAGLUTIDE [Concomitant]
     Active Substance: LIRAGLUTIDE
  2. AMBRISENTAN [Suspect]
     Active Substance: AMBRISENTAN
     Indication: PULMONARY ARTERIAL HYPERTENSION
     Dosage: 5 MG, QD
     Route: 048
     Dates: start: 20181107
  3. LABETALOL [Suspect]
     Active Substance: LABETALOL\LABETALOL HYDROCHLORIDE
     Indication: PRODUCT USED FOR UNKNOWN INDICATION
     Dosage: 200 MG, BID
     Route: 048
  4. OMEPRAZOLE. [Concomitant]
     Active Substance: OMEPRAZOLE
  5. IRON [Concomitant]
     Active Substance: IRON
  6. EPIPEN [Concomitant]
     Active Substance: EPINEPHRINE
  7. FOLIC ACID. [Concomitant]
     Active Substance: FOLIC ACID
  8. CLONAZEPAM. [Concomitant]
     Active Substance: CLONAZEPAM
     Dosage: 2 MG, BID
  9. KETOCONAZOLE. [Concomitant]
     Active Substance: KETOCONAZOLE
  10. PRENATABS FA [Concomitant]
     Active Substance: .BETA.-CAROTENE\ASCORBIC ACID\CALCIUM CARBONATE\CHOLECALCIFEROL\CYANOCOBALAMIN\FERROUS FUMARATE\FOLIC ACID\NIACINAMIDE\POTASSIUM IODIDE\PYRIDOXINE HYDROCHLORIDE\RIBOFLAVIN\THIAMINE MONONITRATE\ZINC
  11. SILDENAFIL. [Concomitant]
     Active Substance: SILDENAFIL
  12. ADVAIR HFA [Concomitant]
     Active Substance: FLUTICASONE PROPIONATE\SALMETEROL XINAFOATE
  13. LASIX [Concomitant]
     Active Substance: FUROSEMIDE
  14. LEVONORGESTREL. [Concomitant]
     Active Substance: LEVONORGESTREL
  15. QUETIAPINE. [Concomitant]
     Active Substance: QUETIAPINE
  16. FLUTICASONE. [Concomitant]
     Active Substance: FLUTICASONE
  17. SPIRIVA COMBI [Concomitant]
     Active Substance: TIOTROPIUM BROMIDE
  18. ALBUTEROL SULFATE. [Concomitant]
     Active Substance: ALBUTEROL SULFATE
     Dosage: 90 UG
  19. FUROSEMIDE. [Concomitant]
     Active Substance: FUROSEMIDE

REACTIONS (3)
  - Iron deficiency anaemia [Unknown]
  - Oedema peripheral [Recovered/Resolved]
  - Dyspnoea [Recovered/Resolved]

NARRATIVE: CASE EVENT DATE: 20181214
